FAERS Safety Report 18858310 (Version 1)
Quarter: 2021Q1

REPORT INFORMATION
  Report Type: Spontaneous
  Country: US (occurrence: US)
  Receive Date: 20210205
  Receipt Date: 20210205
  Transmission Date: 20210420
  Serious: Yes (Death, Hospitalization)
  Sender: FDA-Public Use
  Company Number: None

PATIENT
  Age: 69 Year
  Sex: Female
  Weight: 89 kg

DRUGS (10)
  1. CHLORHEXIDINE GLUCONATE ORAL RINSE, 0.12% [Suspect]
     Active Substance: CHLORHEXIDINE GLUCONATE
     Indication: PROPHYLAXIS
     Route: 049
     Dates: start: 20200926, end: 20201008
  2. PIPERACILLLIN?TAZOBACTAM [Concomitant]
  3. CHLORHEXIDINE GLUCONATE ORAL RINSE, 0.12% [Suspect]
     Active Substance: CHLORHEXIDINE GLUCONATE
     Indication: PNEUMONIA
     Route: 049
     Dates: start: 20200926, end: 20201008
  4. ADULT TPN?CENTRAL [Concomitant]
  5. NOREPINEPHRINE INFUSION [Concomitant]
     Active Substance: NOREPINEPHRINE
  6. PANTOPRAZOLE INJECTION [Concomitant]
     Active Substance: PANTOPRAZOLE
  7. FENTANYL INFUSION AS NEEDED [Concomitant]
  8. FLUCONAZOLE. [Concomitant]
     Active Substance: FLUCONAZOLE
  9. PRISMESATE [Concomitant]
  10. PROPOFOL INJECTION [Concomitant]
     Active Substance: PROPOFOL

REACTIONS (4)
  - Death [None]
  - Recalled product administered [None]
  - Burkholderia test positive [None]
  - Product contamination microbial [None]

NARRATIVE: CASE EVENT DATE: 20201006
